FAERS Safety Report 5334676-1 (Version None)
Quarter: 2007Q2

REPORT INFORMATION
  Report Type: 
  Country: None (occurrence: None)
  Receive Date: 20070525
  Receipt Date: 20070524
  Transmission Date: 20071010
  Serious: Yes (Other)
  Sender: FDA-Public Use
  Company Number: Z0000248A

PATIENT
  Age: 52 Year
  Sex: Female
  Weight: 84 kg

DRUGS (2)
  1. LAPATINIB [Suspect]
     Dosage: 1000MG PER DAY
     Route: 048
     Dates: start: 20061116, end: 20061205
  2. HERCEPTIN [Suspect]
     Route: 042
     Dates: start: 20061129, end: 20061207

REACTIONS (1)
  - HEPATIC ENZYME INCREASED [None]
